FAERS Safety Report 6771899-9 (Version None)
Quarter: 2010Q2

REPORT INFORMATION
  Report Type: 
  Country: None (occurrence: None)
  Receive Date: 20100616
  Receipt Date: 20091030
  Transmission Date: 20101027
  Serious: No
  Sender: FDA-Public Use
  Company Number: US-ASTRAZENECA-2009SE23891

PATIENT
  Age: 861 Month
  Sex: Female
  Weight: 55.3 kg

DRUGS (5)
  1. ENTOCORT EC [Suspect]
     Indication: CROHN'S DISEASE
     Route: 048
     Dates: start: 20090801
  2. BENICAR [Concomitant]
     Indication: HYPERTENSION
  3. ACTINOL [Concomitant]
     Indication: OSTEOPOROSIS
  4. VITAMINS [Concomitant]
  5. CALCIUM CARBONATE [Concomitant]

REACTIONS (4)
  - CONTUSION [None]
  - FREQUENT BOWEL MOVEMENTS [None]
  - SKIN HAEMORRHAGE [None]
  - SKIN LACERATION [None]
